FAERS Safety Report 5564197-2 (Version None)
Quarter: 2007Q4

REPORT INFORMATION
  Report Type: 
  Country: None (occurrence: None)
  Receive Date: 20071212
  Receipt Date: 20071129
  Transmission Date: 20080405
  Serious: Yes (Other)
  Sender: FDA-Public Use
  Company Number: 230791J07USA

PATIENT
  Age: 48 Year
  Sex: Female

DRUGS (1)
  1. REBIF [Suspect]
     Indication: MULTIPLE SCLEROSIS
     Dosage: SEE IMAGE
     Route: 058
     Dates: start: 20070820, end: 20070101

REACTIONS (12)
  - BACK PAIN [None]
  - CALCINOSIS [None]
  - CONTUSION [None]
  - HEPATIC CYST [None]
  - INJECTION SITE BRUISING [None]
  - INJECTION SITE PAIN [None]
  - INJECTION SITE REACTION [None]
  - MUSCULOSKELETAL STIFFNESS [None]
  - MYALGIA [None]
  - RENAL CYST [None]
  - SKIN DISORDER [None]
  - SPLENIC CYST [None]
